FAERS Safety Report 24013107 (Version 1)
Quarter: 2024Q2

REPORT INFORMATION
  Report Type: Spontaneous
  Country: US (occurrence: US)
  Receive Date: 20240626
  Receipt Date: 20240626
  Transmission Date: 20240716
  Serious: No
  Sender: FDA-Public Use
  Company Number: US-JNJFOC-20240660634

PATIENT
  Sex: Female

DRUGS (1)
  1. SPRAVATO [Suspect]
     Active Substance: ESKETAMINE
     Indication: Depression

REACTIONS (6)
  - Dissociation [Unknown]
  - Inappropriate affect [Unknown]
  - Abnormal behaviour [Unknown]
  - Drug ineffective [Unknown]
  - Product contamination [Unknown]
  - Dysgeusia [Unknown]
